FAERS Safety Report 20139272 (Version 1)
Quarter: 2021Q4

REPORT INFORMATION
  Report Type: Spontaneous
  Country: US (occurrence: US)
  Receive Date: 20211202
  Receipt Date: 20211202
  Transmission Date: 20220303
  Serious: Yes (Other)
  Sender: FDA-Public Use
  Company Number: US-GLAXOSMITHKLINE-US2021GSK247253

PATIENT
  Sex: Female

DRUGS (6)
  1. RANITIDINE [Suspect]
     Active Substance: RANITIDINE
     Indication: Hyperchlorhydria
     Dosage: 150 MG PRESCRIPTION
     Route: 065
     Dates: start: 199701, end: 200201
  2. RANITIDINE [Suspect]
     Active Substance: RANITIDINE
     Dosage: 300 UNK, QD
     Route: 065
     Dates: start: 199701, end: 200201
  3. ZANTAC [Suspect]
     Active Substance: RANITIDINE HYDROCHLORIDE
     Indication: Hyperchlorhydria
     Dosage: 75 MG, QD
     Route: 065
     Dates: start: 200201, end: 201201
  4. RANITIDINE [Suspect]
     Active Substance: RANITIDINE
     Indication: Hyperchlorhydria
     Dosage: 75 MG, QD
     Route: 065
     Dates: start: 200201, end: 201201
  5. RANITIDINE [Suspect]
     Active Substance: RANITIDINE
     Indication: Hyperchlorhydria
     Dosage: 150 MG PRESCRIPTION
     Route: 065
     Dates: start: 199701, end: 200201
  6. RANITIDINE [Suspect]
     Active Substance: RANITIDINE
     Dosage: 300 UNK, QD
     Route: 065
     Dates: start: 199701, end: 200201

REACTIONS (1)
  - Oesophageal carcinoma [Unknown]
